FAERS Safety Report 13300519 (Version 1)
Quarter: 2017Q1

REPORT INFORMATION
  Report Type: Spontaneous
  Country: US (occurrence: US)
  Receive Date: 20170307
  Receipt Date: 20170307
  Transmission Date: 20170428
  Serious: Yes (Hospitalization)
  Sender: FDA-Public Use
  Company Number: US-TEVA-634267USA

PATIENT
  Sex: Female
  Weight: 68.1 kg

DRUGS (1)
  1. GABAPENTIN. [Suspect]
     Active Substance: GABAPENTIN
     Route: 065

REACTIONS (5)
  - Pain [Unknown]
  - Hospitalisation [Unknown]
  - Drug ineffective [Unknown]
  - Muscle spasms [Unknown]
  - Product substitution issue [Unknown]
